FAERS Safety Report 7650592-4 (Version None)
Quarter: 2011Q3

REPORT INFORMATION
  Report Type: 
  Country: None (occurrence: None)
  Receive Date: 20110802
  Receipt Date: 20110727
  Transmission Date: 20111222
  Serious: Yes (Other)
  Sender: FDA-Public Use
  Company Number: US-SANOFI-AVENTIS-2011SA048204

PATIENT
  Age: 73 Year
  Sex: Female

DRUGS (10)
  1. PLAVIX [Suspect]
     Route: 048
     Dates: start: 20060101
  2. ASPIRIN [Concomitant]
  3. ATORVASTATIN [Concomitant]
     Route: 048
  4. ALL OTHER THERAPEUTIC PRODUCTS [Concomitant]
     Dosage: 1 SPRAY IN EACH NOSTRIL TWICE DAILY
  5. LISINOPRIL AND HYDROCHLOROTHIAZIDE [Concomitant]
     Dosage: 20/25 MG ONCE DAILY
  6. METOPROLOL TARTRATE [Concomitant]
  7. VITAMIN D [Concomitant]
     Dosage: DOSE:50000 UNIT(S)
  8. XANAX [Concomitant]
     Indication: ANXIETY
  9. ZETIA [Concomitant]
  10. CLARITIN [Concomitant]

REACTIONS (1)
  - ATRIAL FIBRILLATION [None]
